FAERS Safety Report 9269288 (Version 1)
Quarter: 2013Q2

REPORT INFORMATION
  Report Type: Spontaneous
  Country: US (occurrence: US)
  Receive Date: 20130503
  Receipt Date: 20130503
  Transmission Date: 20140414
  Serious: No
  Sender: FDA-Public Use
  Company Number: US-PFIZER INC-2013122456

PATIENT
  Age: 53 Year
  Sex: Male
  Weight: 86.17 kg

DRUGS (3)
  1. LYRICA [Suspect]
     Indication: HYPOAESTHESIA
     Dosage: 75 MG, 2X/DAY
     Route: 048
  2. LYRICA [Suspect]
     Indication: PARAESTHESIA
     Dosage: 75 MG, 1X/DAY
     Route: 048
  3. LIPITOR [Suspect]
     Dosage: UNK

REACTIONS (2)
  - Nasopharyngitis [Unknown]
  - Intentional drug misuse [Not Recovered/Not Resolved]
